FAERS Safety Report 24983758 (Version 2)
Quarter: 2025Q1

REPORT INFORMATION
  Report Type: Spontaneous
  Country: US (occurrence: US)
  Receive Date: 20250219
  Receipt Date: 20250225
  Transmission Date: 20250409
  Serious: Yes (Other)
  Sender: BIONPHARMA INC.
  Company Number: US-Bion-014723

PATIENT

DRUGS (1)
  1. DOFETILIDE [Suspect]
     Active Substance: DOFETILIDE
     Indication: Atrial fibrillation

REACTIONS (2)
  - Product solubility abnormal [Unknown]
  - Condition aggravated [Unknown]
